FAERS Safety Report 7290437-8 (Version None)
Quarter: 2011Q1

REPORT INFORMATION
  Report Type: 
  Country: None (occurrence: None)
  Receive Date: 20110214
  Receipt Date: 20110202
  Transmission Date: 20110831
  Serious: Yes (Hospitalization)
  Sender: FDA-Public Use
  Company Number: US-SANOFI-AVENTIS-2011SA002336

PATIENT
  Age: 66 Year
  Sex: Male
  Weight: 71.66 kg

DRUGS (6)
  1. METOPROLOL [Concomitant]
  2. PRILOSEC [Concomitant]
  3. MULTAQ [Suspect]
     Route: 048
     Dates: start: 20101128, end: 20101223
  4. AMIODARONE HCL [Suspect]
     Indication: ATRIAL FIBRILLATION
     Route: 065
  5. ASPIRIN [Concomitant]
  6. ZOSYN [Concomitant]

REACTIONS (1)
  - PULMONARY TOXICITY [None]
